FAERS Safety Report 17443381 (Version 1)
Quarter: 2020Q1

REPORT INFORMATION
  Report Type: Spontaneous
  Country: US (occurrence: US)
  Receive Date: 20200221
  Receipt Date: 20200221
  Transmission Date: 20200409
  Serious: Yes (Other)
  Sender: FDA-Public Use
  Company Number: US-AUROBINDO-AUR-APL-2020-008019

PATIENT
  Age: 45 Year
  Sex: Female

DRUGS (1)
  1. METHYLPREDNISOLONE. [Suspect]
     Active Substance: METHYLPREDNISOLONE
     Indication: GRAFT VERSUS HOST DISEASE
     Dosage: 2 MILLIGRAM/KILOGRAM, ONCE A DAY
     Route: 065

REACTIONS (5)
  - Diarrhoea [Recovered/Resolved]
  - Haematochezia [Unknown]
  - Abdominal pain [Unknown]
  - Graft versus host disease [Unknown]
  - Drug ineffective [Unknown]
